FAERS Safety Report 11195392 (Version 1)
Quarter: 2015Q2

REPORT INFORMATION
  Report Type: Spontaneous
  Country: AU (occurrence: None)
  Receive Date: 20150615
  Receipt Date: 20150615
  Transmission Date: 20150821
  Serious: Yes (Hospitalization)
  Sender: FDA-Public Use
  Company Number: FK201502678

PATIENT
  Age: 30 Year
  Sex: Male

DRUGS (2)
  1. GENTAMICIN. [Concomitant]
     Active Substance: GENTAMICIN
  2. DEXAMETHASONE. [Suspect]
     Active Substance: DEXAMETHASONE
     Indication: CHORIORETINITIS
     Route: 057

REACTIONS (3)
  - Necrotising retinitis [None]
  - Off label use [None]
  - Infection reactivation [None]
